FAERS Safety Report 21994520 (Version 1)
Quarter: 2023Q1

REPORT INFORMATION
  Report Type: Report from Study
  Country: HN (occurrence: HN)
  Receive Date: 20230215
  Receipt Date: 20230215
  Transmission Date: 20230417
  Serious: Yes (Disabling)
  Sender: FDA-Public Use
  Company Number: HN-MYLANLABS-2023M1016069

PATIENT
  Age: 76 Year
  Sex: Female

DRUGS (3)
  1. LIPITOR [Suspect]
     Active Substance: ATORVASTATIN CALCIUM
     Indication: Cardiac disorder
     Dosage: 1 DOSAGE FORM, QD, (30 TABLET)
     Route: 048
     Dates: start: 20220808
  2. DIAPLEX [Concomitant]
     Indication: Diabetes mellitus
     Dosage: 1 DOSAGE FORM, QD, (START DATE: 08-JUL-2022)
     Route: 048
     Dates: start: 20220708
  3. DIAPLEX [Concomitant]
     Indication: Urine analysis abnormal

REACTIONS (5)
  - Eye irritation [Not Recovered/Not Resolved]
  - Visual impairment [Not Recovered/Not Resolved]
  - Tachycardia [Not Recovered/Not Resolved]
  - Tremor [Not Recovered/Not Resolved]
  - Pollakiuria [Not Recovered/Not Resolved]

NARRATIVE: CASE EVENT DATE: 20230201
